FAERS Safety Report 5756564-9 (Version None)
Quarter: 2008Q2

REPORT INFORMATION
  Report Type: 
  Country: None (occurrence: None)
  Receive Date: 20080528
  Receipt Date: 20080501
  Transmission Date: 20081010
  Serious: Yes (Disabling)
  Sender: FDA-Public Use
  Company Number: SPV1-2007-05279

PATIENT
  Age: 55 Year
  Sex: Female
  Weight: 53.5 kg

DRUGS (7)
  1. FOSRENOL [Suspect]
     Indication: HYPERPHOSPHATAEMIA
     Dosage: 1000 MG, 1X/DAY:QD, ORAL; 1000 MG, 1X/DAY:QD, ORAL
     Route: 048
     Dates: start: 20060321, end: 20060823
  2. FOSRENOL [Suspect]
     Indication: HYPERPHOSPHATAEMIA
     Dosage: 1000 MG, 1X/DAY:QD, ORAL; 1000 MG, 1X/DAY:QD, ORAL
     Route: 048
     Dates: start: 20070123, end: 20070308
  3. SENSIPAR (CINACALCET HYDROCHLORIDE) [Concomitant]
  4. COZAAR [Concomitant]
  5. CLONIDINE [Concomitant]
  6. COREG [Concomitant]
  7. IVIGLOB-EX (IMMUNOGLOBULIN) [Concomitant]

REACTIONS (5)
  - ANAEMIA [None]
  - EOSINOPHILIA [None]
  - GENERAL PHYSICAL HEALTH DETERIORATION [None]
  - HYPOALBUMINAEMIA [None]
  - PYREXIA [None]
